FAERS Safety Report 8551733-7 (Version None)
Quarter: 2012Q3

REPORT INFORMATION
  Report Type: 
  Country: None (occurrence: None)
  Receive Date: 20120730
  Receipt Date: 20120725
  Transmission Date: 20120928
  Serious: Yes (Life-Threatening, Hospitalization)
  Sender: FDA-Public Use
  Company Number: IT-CELGENEUS-083-CCAZA-12032173

PATIENT
  Sex: Male
  Weight: 80 kg

DRUGS (26)
  1. AZACITIDINE [Suspect]
     Dosage: 75 MILLIGRAM/SQ. METER
     Route: 058
     Dates: start: 20120403, end: 20120409
  2. AVODART [Concomitant]
     Dosage: .5 MILLIGRAM
     Route: 048
     Dates: start: 20111201
  3. DOBETIN [Concomitant]
     Indication: SUPPORTIVE CARE
     Dosage: 1 MILLIGRAM
     Route: 041
     Dates: start: 20120215, end: 20120216
  4. LEVOFLOXACIN [Concomitant]
     Dosage: 500 MILLIGRAM
     Route: 048
     Dates: start: 20120302
  5. SODIUM CHLORIDE [Concomitant]
     Indication: DEHYDRATION
     Dosage: 500 MILLILITER
     Route: 041
     Dates: start: 20120220, end: 20120226
  6. LASIX [Concomitant]
     Dosage: 20 UNKNOWN
     Route: 041
     Dates: start: 20120407, end: 20120407
  7. VFEND [Concomitant]
     Indication: ANTIFUNGAL PROPHYLAXIS
     Dosage: 400 MILLIGRAM
     Route: 048
     Dates: start: 20120215, end: 20120216
  8. SODIUM CHLORIDE [Concomitant]
     Dosage: 1000 MILLIGRAM
     Route: 041
     Dates: start: 20120406, end: 20120418
  9. LASIX [Concomitant]
     Dosage: 25 MILLIGRAM
     Route: 048
     Dates: start: 20120406, end: 20120409
  10. LASIX [Concomitant]
     Dosage: 20 MILLIGRAM
     Route: 048
     Dates: start: 20120410, end: 20120417
  11. ALBUMINA [Concomitant]
     Indication: SUPPORTIVE CARE
     Dosage: 50 MILLILITER
     Route: 041
     Dates: start: 20120222, end: 20120223
  12. GRANULOKINE [Concomitant]
     Indication: SUPPORTIVE CARE
     Dosage: 300 MICROGRAM
     Route: 065
     Dates: start: 20120320, end: 20120324
  13. AMBISOME [Concomitant]
     Indication: ANTIFUNGAL PROPHYLAXIS
     Dosage: 250 MILLIGRAM
     Route: 065
     Dates: start: 20120412, end: 20120417
  14. CORDARONE [Concomitant]
     Indication: ATRIAL FIBRILLATION
     Dosage: 200 MILLIGRAM
     Route: 048
     Dates: start: 20111201, end: 20120227
  15. NOXAFIL [Concomitant]
     Indication: ANTIFUNGAL PROPHYLAXIS
     Dosage: 2 DOSAGE FORMS
     Route: 048
     Dates: start: 20120221, end: 20120227
  16. LASIX [Concomitant]
     Indication: HYPERTENSION
     Dosage: 25 MILLIGRAM
     Route: 048
     Dates: start: 20120218, end: 20120221
  17. LASIX [Concomitant]
     Indication: PROPHYLAXIS
     Dosage: 25 MILLIGRAM
     Route: 048
     Dates: start: 20120225, end: 20120305
  18. LOPRESSOR [Concomitant]
     Indication: HYPERTENSION
     Dosage: 100 MILLIGRAM
     Route: 048
     Dates: start: 20111201
  19. LEVOLAC [Concomitant]
     Indication: PROPHYLAXIS
     Dosage: 2 DOSAGE FORMS
     Route: 048
     Dates: start: 20120215, end: 20120217
  20. AZACITIDINE [Suspect]
     Dosage: 75 MILLIGRAM/SQ. METER
     Route: 058
     Dates: start: 20120220, end: 20120226
  21. NORVASC [Concomitant]
     Indication: HYPERTENSION
     Dosage: 5 MILLIGRAM
     Route: 048
     Dates: start: 20111201
  22. VFEND [Concomitant]
     Dosage: 400 MILLIGRAM
     Route: 048
     Dates: start: 20120229, end: 20120412
  23. NAVOBAN [Concomitant]
     Indication: ANTIEMETIC SUPPORTIVE CARE
     Dosage: 5 MILLIGRAM
     Route: 041
     Dates: start: 20120220, end: 20120226
  24. LEVOFLOXACIN [Concomitant]
     Dosage: 500 MILLIGRAM
     Route: 048
     Dates: start: 20120118, end: 20120225
  25. LANSOPRAZOLE [Concomitant]
     Indication: GASTRITIS PROPHYLAXIS
     Dosage: 30 MILLIGRAM
     Route: 048
     Dates: start: 20120215
  26. NAVOBAN [Concomitant]
     Dosage: 100 MILLIGRAM
     Route: 041
     Dates: start: 20120406, end: 20120409

REACTIONS (1)
  - PNEUMONIA [None]
